FAERS Safety Report 9920383 (Version 2)
Quarter: 2020Q3

REPORT INFORMATION
  Report Type: Report from Study
  Country: IT (occurrence: IT)
  Receive Date: 20140224
  Receipt Date: 20140307
  Transmission Date: 20201105
  Serious: Yes (Hospitalization)
  Sender: FDA-Public Use
  Company Number: PHHY2014IT018879

PATIENT
  Age: 75 Year
  Sex: Male

DRUGS (13)
  1. FLUOROURACIL. [Suspect]
     Active Substance: FLUOROURACIL
     Dosage: 580 MG, UNK
     Route: 042
     Dates: start: 20140117
  2. ONARTUZUMAB. [Suspect]
     Active Substance: ONARTUZUMAB
     Route: 042
     Dates: start: 20140115
  3. ARIXTRA [Concomitant]
     Active Substance: FONDAPARINUX SODIUM
     Indication: VENOUS THROMBOSIS
     Dosage: 7.5 MG, UNK
     Route: 058
     Dates: start: 20131217
  4. TACHIDOL [Concomitant]
     Active Substance: ACETAMINOPHEN\CODEINE PHOSPHATE
     Indication: ABDOMINAL PAIN UPPER
     Route: 048
     Dates: start: 20131113
  5. OXALIPLATIN. [Suspect]
     Active Substance: OXALIPLATIN
     Indication: GASTROOESOPHAGEAL CANCER
     Dosage: 154 MG, UNK
     Route: 042
     Dates: start: 20131204
  6. GRANISETRON [Concomitant]
     Active Substance: GRANISETRON
     Indication: PREMEDICATION
     Route: 042
  7. FOLINIC ACID [Suspect]
     Active Substance: LEUCOVORIN
     Indication: GASTROOESOPHAGEAL CANCER
     Dosage: 362 MG, BIW
     Route: 042
     Dates: start: 20131204
  8. FLUOROURACIL. [Suspect]
     Active Substance: FLUOROURACIL
     Dosage: 3440 MG, UNK
     Route: 042
  9. FOLINIC ACID [Suspect]
     Active Substance: LEUCOVORIN
     Dosage: 362 MG, UNK
     Route: 042
     Dates: start: 20140115
  10. ONARTUZUMAB. [Suspect]
     Active Substance: ONARTUZUMAB
     Indication: GASTROOESOPHAGEAL CANCER
     Route: 042
     Dates: start: 20131204
  11. DEXAMETHASONE. [Concomitant]
     Active Substance: DEXAMETHASONE
     Indication: PREMEDICATION
     Route: 042
  12. OXALIPLATIN. [Suspect]
     Active Substance: OXALIPLATIN
     Dosage: 154 MG, UNK
     Route: 042
     Dates: start: 20140115
  13. FLUOROURACIL. [Suspect]
     Active Substance: FLUOROURACIL
     Indication: GASTROOESOPHAGEAL CANCER
     Dosage: 580 MG, BIW
     Route: 042
     Dates: start: 20131204

REACTIONS (3)
  - Fatigue [Not Recovered/Not Resolved]
  - Vomiting [Recovered/Resolved]
  - Diarrhoea [Not Recovered/Not Resolved]

NARRATIVE: CASE EVENT DATE: 20140103
